FAERS Safety Report 9004750 (Version 2)
Quarter: 2013Q1

REPORT INFORMATION
  Report Type: Spontaneous
  Country: US (occurrence: US)
  Receive Date: 20130109
  Receipt Date: 20130226
  Transmission Date: 20140127
  Serious: No
  Sender: FDA-Public Use
  Company Number: US-PFIZER INC-2013005825

PATIENT
  Age: 58 Year
  Sex: Male

DRUGS (3)
  1. GEODON [Suspect]
     Dosage: 60 M, 2 PILLS A DAY
     Route: 048
  2. GEODON [Suspect]
     Dosage: 60 MG, ONE Q AM
     Route: 048
  3. ZIPRASIDONE HCL [Suspect]

REACTIONS (1)
  - Fear [Unknown]
